FAERS Safety Report 7815540-2 (Version None)
Quarter: 2011Q4

REPORT INFORMATION
  Report Type: 
  Country: None (occurrence: None)
  Receive Date: 20111014
  Receipt Date: 20111005
  Transmission Date: 20120403
  Serious: Yes (Other)
  Sender: FDA-Public Use
  Company Number: US-ROCHE-1001333

PATIENT
  Age: 61 Year
  Sex: Female

DRUGS (1)
  1. AVASTIN [Suspect]
     Indication: ENDOMETRIAL CANCER

REACTIONS (3)
  - HYPERTENSION [None]
  - HAEMOLYTIC URAEMIC SYNDROME [None]
  - PROTEINURIA [None]
